FAERS Safety Report 18764293 (Version 1)
Quarter: 2021Q1

REPORT INFORMATION
  Report Type: Report from Study
  Country: US (occurrence: US)
  Receive Date: 20210120
  Receipt Date: 20210120
  Transmission Date: 20210419
  Serious: Yes (Death, Other)
  Sender: FDA-Public Use
  Company Number: US-ASTRAZENECA-2021A009132

PATIENT
  Age: 20347 Day
  Sex: Male
  Weight: 79.4 kg

DRUGS (1)
  1. LYNPARZA [Suspect]
     Active Substance: OLAPARIB
     Indication: LUNG NEOPLASM MALIGNANT
     Route: 048
     Dates: start: 202011, end: 202012

REACTIONS (8)
  - Malaise [Unknown]
  - Weight decreased [Unknown]
  - Death [Fatal]
  - Malignant neoplasm progression [Unknown]
  - Nausea [Unknown]
  - Illness [Unknown]
  - Product administration error [Unknown]
  - Liver disorder [Not Recovered/Not Resolved]

NARRATIVE: CASE EVENT DATE: 20210108
